FAERS Safety Report 19037155 (Version 3)
Quarter: 2024Q1

REPORT INFORMATION
  Report Type: Spontaneous
  Country: CA (occurrence: None)
  Receive Date: 20210322
  Receipt Date: 20240305
  Transmission Date: 20240410
  Serious: Yes (Hospitalization)
  Sender: FDA-Public Use
  Company Number: CA-ROCHE-2793214

PATIENT
  Age: 60 Year
  Sex: Female
  Weight: 66 kg

DRUGS (18)
  1. TRASTUZUMAB [Suspect]
     Active Substance: TRASTUZUMAB
     Indication: Breast cancer metastatic
     Route: 042
  2. TRASTUZUMAB [Suspect]
     Active Substance: TRASTUZUMAB
     Route: 041
  3. TRASTUZUMAB [Suspect]
     Active Substance: TRASTUZUMAB
     Route: 042
  4. TRASTUZUMAB [Suspect]
     Active Substance: TRASTUZUMAB
     Route: 042
  5. TRASTUZUMAB [Suspect]
     Active Substance: TRASTUZUMAB
     Route: 042
  6. IBRANCE [Concomitant]
     Active Substance: PALBOCICLIB
  7. AMLODIPINE [Concomitant]
     Active Substance: AMLODIPINE BESYLATE
     Route: 065
  8. XGEVA [Concomitant]
     Active Substance: DENOSUMAB
     Route: 058
  9. CAPECITABINE [Concomitant]
     Active Substance: CAPECITABINE
     Route: 048
  10. GABAPENTIN [Concomitant]
     Active Substance: GABAPENTIN
     Route: 065
  11. LETROZOLE [Concomitant]
     Active Substance: LETROZOLE
  12. LORAZEPAM [Concomitant]
     Active Substance: LORAZEPAM
     Route: 065
  13. NINTEDANIB [Concomitant]
     Active Substance: NINTEDANIB
  14. RAMIPRIL [Concomitant]
     Active Substance: RAMIPRIL
  15. ZOLEDRONIC ACID [Concomitant]
     Active Substance: ZOLEDRONIC ACID
  16. ATIVAN [Concomitant]
     Active Substance: LORAZEPAM
  17. CANNABIS SATIVA FLOWERING TOP [Concomitant]
     Active Substance: CANNABIS SATIVA FLOWERING TOP
  18. ROSUVASTATIN CALCIUM [Concomitant]
     Active Substance: ROSUVASTATIN CALCIUM

REACTIONS (5)
  - Blood pressure systolic increased [Unknown]
  - Gastroenteritis [Unknown]
  - Blood pressure increased [Unknown]
  - Heart rate decreased [Unknown]
  - Hypertension [Unknown]
